FAERS Safety Report 4899417-0 (Version None)
Quarter: 2006Q1

REPORT INFORMATION
  Report Type: 
  Country: None (occurrence: None)
  Receive Date: 20060202
  Receipt Date: 20051220
  Transmission Date: 20060701
  Serious: Yes (Hospitalization, Other)
  Sender: FDA-Public Use
  Company Number: JP-ABBOTT-05P-087-0320362-00

PATIENT
  Age: 50 Year
  Sex: Male
  Weight: 62 kg

DRUGS (6)
  1. CLARITHROMYCIN [Suspect]
     Indication: HELICOBACTER INFECTION
     Route: 048
     Dates: start: 20040826, end: 20040902
  2. CLARITHROMYCIN [Suspect]
     Indication: GASTRIC ULCER
  3. AMOXICILLIN [Suspect]
     Indication: HELICOBACTER INFECTION
     Route: 048
     Dates: start: 20040826, end: 20040902
  4. AMOXICILLIN [Suspect]
     Indication: GASTRIC ULCER
  5. LANSOPRAZOLE [Concomitant]
     Indication: HELICOBACTER INFECTION
     Route: 048
     Dates: start: 20040826, end: 20040902
  6. LANSOPRAZOLE [Concomitant]
     Indication: GASTRIC ULCER

REACTIONS (1)
  - ENTEROCOLITIS HAEMORRHAGIC [None]
